FAERS Safety Report 7588815-2 (Version None)
Quarter: 2011Q3

REPORT INFORMATION
  Report Type: 
  Country: None (occurrence: None)
  Receive Date: 20110705
  Receipt Date: 20110623
  Transmission Date: 20111222
  Serious: No
  Sender: FDA-Public Use
  Company Number: KR-JNJFOC-20110611788

PATIENT
  Age: 89 Year
  Sex: Male

DRUGS (1)
  1. DURAGESIC-100 [Suspect]
     Indication: PAIN MANAGEMENT
     Dosage: HALF A PATCH APPLIED-  6.25 UG/HR
     Route: 062
     Dates: start: 20110621

REACTIONS (5)
  - PRURITUS [None]
  - DRUG ADMINISTRATION ERROR [None]
  - INTENTIONAL DRUG MISUSE [None]
  - THERAPEUTIC RESPONSE DECREASED [None]
  - DRUG PRESCRIBING ERROR [None]
